FAERS Safety Report 7397092 (Version 4)
Quarter: 2015Q2

REPORT INFORMATION
  Report Type: Spontaneous
  Country: US (occurrence: US)
  Receive Date: 20100524
  Receipt Date: 20150528
  Transmission Date: 20150821
  Serious: Yes (Hospitalization)
  Sender: FDA-Public Use
  Company Number: US-BAYER-201022344NA

PATIENT
  Age: 37 Year
  Sex: Female
  Weight: 68 kg

DRUGS (2)
  1. MIRENA [Suspect]
     Active Substance: LEVONORGESTREL
     Indication: CONTRACEPTION
     Dosage: 20 MCG/24HR, CONT
     Route: 015
     Dates: start: 20060724, end: 20100802
  2. XANAX [Concomitant]
     Active Substance: ALPRAZOLAM

REACTIONS (5)
  - Injury [None]
  - Uterine perforation [None]
  - Device dislocation [None]
  - Device issue [None]
  - Abdominal pain [None]

NARRATIVE: CASE EVENT DATE: 200708
